FAERS Safety Report 17939421 (Version 1)
Quarter: 2020Q2

REPORT INFORMATION
  Report Type: Spontaneous
  Country: DE (occurrence: DE)
  Receive Date: 20200624
  Receipt Date: 20200624
  Transmission Date: 20200714
  Serious: Yes (Other)
  Sender: FDA-Public Use
  Company Number: DE-PFIZER INC-2020240969

PATIENT
  Age: 66 Year
  Sex: Female
  Weight: 88 kg

DRUGS (13)
  1. TORASEMIDE [Concomitant]
     Active Substance: TORSEMIDE
     Indication: PRODUCT USED FOR UNKNOWN INDICATION
     Dosage: 10 OT, QD (MORNING)
     Route: 065
     Dates: start: 2012
  2. TORASEMIDE [Concomitant]
     Active Substance: TORSEMIDE
     Dosage: 5 OT, QD (MORNING)
     Route: 065
     Dates: start: 201205
  3. CARVEDILOL. [Concomitant]
     Active Substance: CARVEDILOL
     Dosage: 25 OT, QD (MORNING)
     Route: 065
     Dates: end: 2013
  4. VALSARTAN. [Suspect]
     Active Substance: VALSARTAN
     Dosage: 160 MG, 1X/DAY (QD)
     Route: 065
     Dates: start: 2014
  5. AMLODIPINE BESILATE [Suspect]
     Active Substance: AMLODIPINE BESYLATE
     Dosage: UNK
     Route: 065
  6. VALSARTAN. [Suspect]
     Active Substance: VALSARTAN
     Dosage: 160 MG, 1X/DAY (QD (MORNING))
     Route: 065
     Dates: start: 2013
  7. PROCORALAN [Concomitant]
     Active Substance: IVABRADINE
     Indication: PRODUCT USED FOR UNKNOWN INDICATION
     Dosage: 5 OT, BID
     Route: 065
     Dates: start: 2013
  8. SIMVASTATIN. [Concomitant]
     Active Substance: SIMVASTATIN
     Indication: PRODUCT USED FOR UNKNOWN INDICATION
     Dosage: 40 OT, QD (EVENING)
     Route: 065
  9. CARVEDILOL. [Concomitant]
     Active Substance: CARVEDILOL
     Indication: PRODUCT USED FOR UNKNOWN INDICATION
     Dosage: 12.5 OT, QD (EVENING)
     Route: 065
     Dates: end: 2013
  10. TORASEMIDE [Concomitant]
     Active Substance: TORSEMIDE
     Dosage: 5 OT, QD (MORNING)
     Route: 065
     Dates: start: 2013
  11. VALSARTAN. [Suspect]
     Active Substance: VALSARTAN
     Indication: HYPERTENSION
     Dosage: 320 MG, 1X/DAY (160 MG, BID)
     Route: 065
     Dates: start: 20120614, end: 2013
  12. VALSARTAN. [Suspect]
     Active Substance: VALSARTAN
     Dosage: 160 MG, 1X/DAY QD (EVENING)
     Route: 065
     Dates: start: 2013
  13. VALSARTAN. [Suspect]
     Active Substance: VALSARTAN
     Dosage: 160 MG, 1X/DAY (QD (MORNING))
     Route: 065

REACTIONS (8)
  - Blood pressure increased [Unknown]
  - Body mass index increased [Unknown]
  - Gait inability [Unknown]
  - Cervix carcinoma [Unknown]
  - Psoriasis [Unknown]
  - Disability [Unknown]
  - Oedema peripheral [Recovered/Resolved]
  - Blood pressure diastolic abnormal [Unknown]

NARRATIVE: CASE EVENT DATE: 201112
